FAERS Safety Report 23764281 (Version 1)
Quarter: 2024Q2

REPORT INFORMATION
  Report Type: Spontaneous
  Country: CA (occurrence: CA)
  Receive Date: 20240420
  Receipt Date: 20240420
  Transmission Date: 20240715
  Serious: Yes (Life-Threatening, Hospitalization)
  Sender: FDA-Public Use
  Company Number: CA-TEVA-VS-3185644

PATIENT
  Age: 4 Year
  Sex: Female
  Weight: 13 kg

DRUGS (28)
  1. METHOTREXATE SODIUM [Suspect]
     Active Substance: METHOTREXATE SODIUM
     Indication: Product used for unknown indication
     Route: 042
  2. PIPERACILLIN SODIUM\TAZOBACTAM SODIUM [Concomitant]
     Active Substance: PIPERACILLIN SODIUM\TAZOBACTAM SODIUM
     Route: 065
  3. PROTAMINE SULFATE [Concomitant]
     Active Substance: PROTAMINE SULFATE
     Route: 065
  4. SULFAMETHOXAZOLE\TRIMETHOPRIM [Concomitant]
     Active Substance: SULFAMETHOXAZOLE\TRIMETHOPRIM
     Route: 065
  5. URSODIOL [Concomitant]
     Active Substance: URSODIOL
     Route: 065
  6. ZINC OXIDE [Concomitant]
     Active Substance: ZINC OXIDE
     Route: 065
  7. ZINC SULFATE [Concomitant]
     Active Substance: ZINC SULFATE
     Route: 065
  8. ONDANSETRON [Concomitant]
     Active Substance: ONDANSETRON
     Route: 065
  9. ETOPOSIDE [Suspect]
     Active Substance: ETOPOSIDE
     Indication: Bone marrow transplant
     Route: 042
  10. ACETAMINOPHEN [Concomitant]
     Active Substance: ACETAMINOPHEN
     Route: 065
  11. ACYCLOVIR [Concomitant]
     Active Substance: ACYCLOVIR
     Route: 065
  12. AMLODIPINE [Concomitant]
     Active Substance: AMLODIPINE BESYLATE
     Route: 065
  13. CALCIUM CARBONATE [Concomitant]
     Active Substance: CALCIUM CARBONATE
     Route: 065
  14. CEFTAZIDIME [Concomitant]
     Active Substance: CEFTAZIDIME
     Dosage: DOSAGE FORM: POWDER FOR SOLUTION
     Route: 065
  15. CETIRIZINE [Concomitant]
     Active Substance: CETIRIZINE HYDROCHLORIDE
     Route: 065
  16. CHOLECALCIFEROL [Concomitant]
     Active Substance: CHOLECALCIFEROL
     Route: 065
  17. CYCLOSPORINE [Concomitant]
     Active Substance: CYCLOSPORINE
     Route: 065
  18. CLEARLAX [Concomitant]
     Active Substance: POLYETHYLENE GLYCOL 3350
     Dosage: DOSAGE FORM: POWDER FOR SOLUTION ORAL
     Route: 065
  19. DEXAMETHASONE [Concomitant]
     Active Substance: DEXAMETHASONE
     Route: 065
  20. ENOXAPARIN [Concomitant]
     Active Substance: ENOXAPARIN
     Route: 065
  21. EPINEPHRINE [Concomitant]
     Active Substance: EPINEPHRINE
     Route: 065
  22. FAMOTIDINE [Concomitant]
     Active Substance: FAMOTIDINE
     Route: 065
  23. FAMOTIDINE [Concomitant]
     Active Substance: FAMOTIDINE
     Route: 065
  24. FUROSEMIDE [Concomitant]
     Active Substance: FUROSEMIDE
     Route: 065
  25. LIDOCAINE [Concomitant]
     Active Substance: LIDOCAINE
     Dosage: DOSAGE FORM: OINTMENT TOPICAL
     Route: 065
  26. MAGNESIUM SULPHATE [MAGNESIUM SULFATE} [Concomitant]
     Route: 065
  27. METHYLCELLULOSES [Concomitant]
     Active Substance: METHYLCELLULOSES
     Route: 065
  28. NABILONE [Concomitant]
     Active Substance: NABILONE
     Route: 065

REACTIONS (11)
  - Abdominal pain [Recovered/Resolved]
  - Aplastic anaemia [Recovered/Resolved]
  - Diarrhoea [Recovered/Resolved]
  - Gingival erythema [Recovered/Resolved]
  - Mucosal inflammation [Recovered/Resolved]
  - Neutropenia [Recovered/Resolved]
  - Off label use [Recovered/Resolved]
  - Oral pain [Recovered/Resolved]
  - Oropharyngeal pain [Recovered/Resolved]
  - Proctalgia [Recovered/Resolved]
  - Thrombocytopenia [Recovered/Resolved]
